FAERS Safety Report 23629567 (Version 1)
Quarter: 2024Q1

REPORT INFORMATION
  Report Type: Report from Study
  Country: NL (occurrence: NL)
  Receive Date: 20240314
  Receipt Date: 20240314
  Transmission Date: 20240410
  Serious: Yes (Other)
  Sender: FDA-Public Use
  Company Number: NL-AUROBINDO-AUR-APL-2022-035030

PATIENT
  Age: 4 Year
  Sex: Male

DRUGS (2)
  1. PREGABALIN [Suspect]
     Active Substance: PREGABALIN
     Indication: Product used for unknown indication
     Dosage: 8.3 MILLIGRAM/KILOGRAM, UNK
     Route: 065
  2. PREGABALIN [Suspect]
     Active Substance: PREGABALIN
     Dosage: 150 MILLIGRAM, UNK
     Route: 065

REACTIONS (6)
  - Ataxia [Unknown]
  - Accidental exposure to product [Unknown]
  - Overdose [Unknown]
  - Toxicity to various agents [Unknown]
  - Accidental overdose [Unknown]
  - Prescription drug used without a prescription [Unknown]
